FAERS Safety Report 14842754 (Version 1)
Quarter: 2018Q2

REPORT INFORMATION
  Report Type: Spontaneous
  Country: GB (occurrence: GB)
  Receive Date: 20180503
  Receipt Date: 20180503
  Transmission Date: 20180711
  Serious: Yes (Life-Threatening, Hospitalization, Disabling, Other)
  Sender: FDA-Public Use
  Company Number: PHHY2016GB096632

PATIENT
  Age: 42 Year
  Sex: Female

DRUGS (10)
  1. EPINEPHRINE. [Suspect]
     Active Substance: EPINEPHRINE
     Dosage: INFUSION
     Route: 041
  2. EPINEPHRINE. [Suspect]
     Active Substance: EPINEPHRINE
     Dosage: 0.1 MG, BOLUS
     Route: 040
  3. DOXAZOSIN [Concomitant]
     Active Substance: DOXAZOSIN\DOXAZOSIN MESYLATE
     Indication: HYPERTENSION
     Route: 065
  4. LABETALOL [Interacting]
     Active Substance: LABETALOL\LABETALOL HYDROCHLORIDE
     Indication: HYPERTENSION
     Route: 065
  5. AMLODIPINE [Concomitant]
     Active Substance: AMLODIPINE BESYLATE
     Indication: HYPERTENSION
     Route: 065
  6. PIPERACILLIN AND TAZOBACTAM [Interacting]
     Active Substance: PIPERACILLIN SODIUM\TAZOBACTAM SODIUM
     Indication: OTITIS MEDIA
     Route: 042
  7. NOREPINEPHRINE. [Suspect]
     Active Substance: NOREPINEPHRINE
     Indication: BRADYCARDIA
     Dosage: INFUSION
     Route: 065
  8. CANDESARTAN. [Concomitant]
     Active Substance: CANDESARTAN
     Indication: HYPERTENSION
     Route: 065
  9. CO-AMOXICLAV [Suspect]
     Active Substance: AMOXICILLIN\CLAVULANIC ACID
     Indication: OTITIS MEDIA
     Route: 065
  10. EPINEPHRINE. [Suspect]
     Active Substance: EPINEPHRINE
     Indication: BRADYCARDIA
     Dosage: BOLUS
     Route: 040

REACTIONS (17)
  - Blood lactic acid increased [Recovered/Resolved]
  - Pulseless electrical activity [Recovered/Resolved]
  - Blood pH decreased [Recovered/Resolved]
  - Cardiac output decreased [Recovered/Resolved]
  - Nervous system disorder [Not Recovered/Not Resolved]
  - Decreased ventricular preload [Recovered/Resolved]
  - Cardiac arrest [Recovered/Resolved with Sequelae]
  - Anaphylactic reaction [Recovered/Resolved]
  - Hypotension [Recovered/Resolved]
  - Bradycardia [Recovered/Resolved]
  - Base excess decreased [Recovered/Resolved]
  - Drug ineffective [Unknown]
  - Drug interaction [Unknown]
  - Cardiac failure [Recovered/Resolved]
  - Tryptase increased [Recovered/Resolved]
  - Respiratory failure [Recovered/Resolved]
  - Lactic acidosis [Recovered/Resolved]
